FAERS Safety Report 14317203 (Version 1)
Quarter: 2017Q4

REPORT INFORMATION
  Report Type: Spontaneous
  Country: US (occurrence: US)
  Receive Date: 20171222
  Receipt Date: 20171222
  Transmission Date: 20180321
  Serious: No
  Sender: FDA-Public Use
  Company Number: US-ASTRAZENECA-2017SF25448

PATIENT
  Age: 954 Month
  Sex: Female
  Weight: 57.6 kg

DRUGS (7)
  1. PROPANOLOL [Concomitant]
     Active Substance: PROPRANOLOL HYDROCHLORIDE
     Indication: BALANCE DISORDER
     Route: 048
     Dates: start: 1990
  2. ISOSORBIDE MONONITRATE. [Concomitant]
     Active Substance: ISOSORBIDE MONONITRATE
     Indication: ANGINA PECTORIS
     Route: 048
     Dates: start: 1990
  3. COQ10 [Concomitant]
     Active Substance: UBIDECARENONE
     Indication: ILL-DEFINED DISORDER
     Route: 048
     Dates: start: 201710
  4. CRESTOR [Suspect]
     Active Substance: ROSUVASTATIN CALCIUM
     Indication: TYPE IIA HYPERLIPIDAEMIA
     Route: 048
     Dates: start: 2003, end: 201710
  5. LIPITOR [Suspect]
     Active Substance: ATORVASTATIN CALCIUM
     Indication: DRUG INTOLERANCE
     Route: 048
     Dates: start: 201710
  6. PROPANOLOL [Concomitant]
     Active Substance: PROPRANOLOL HYDROCHLORIDE
     Indication: TREMOR
     Route: 048
     Dates: start: 1990
  7. SYNTHROID [Concomitant]
     Active Substance: LEVOTHYROXINE SODIUM
     Indication: THYROID DISORDER
     Route: 048
     Dates: start: 1990

REACTIONS (7)
  - Musculoskeletal pain [Not Recovered/Not Resolved]
  - Hepatic enzyme increased [Unknown]
  - Hepatocellular injury [Unknown]
  - Body height decreased [Unknown]
  - Musculoskeletal discomfort [Not Recovered/Not Resolved]
  - Urine abnormality [Recovered/Resolved]
  - Influenza [Unknown]

NARRATIVE: CASE EVENT DATE: 201708
